FAERS Safety Report 9696099 (Version 2)
Quarter: 2013Q4

REPORT INFORMATION
  Report Type: Report from Study
  Country: FR (occurrence: FR)
  Receive Date: 20131119
  Receipt Date: 20131218
  Transmission Date: 20140711
  Serious: Yes (Hospitalization)
  Sender: FDA-Public Use
  Company Number: FR-GLAXOSMITHKLINE-B0944859A

PATIENT
  Age: 88 Year
  Sex: Male
  Weight: 69 kg

DRUGS (8)
  1. PAZOPANIB [Suspect]
     Indication: NEOPLASM MALIGNANT
     Route: 048
     Dates: start: 20131015
  2. KARDEGIC [Concomitant]
     Indication: COAGULOPATHY
  3. NITRIDERM [Concomitant]
     Indication: VASODILATATION
  4. LASILIX [Concomitant]
     Indication: DIURETIC THERAPY
     Dosage: 20MG PER DAY
  5. SOLUPRED [Concomitant]
     Dosage: 20MG PER DAY
  6. MONOTILDIEM [Concomitant]
     Indication: HYPERTENSION
     Dosage: 200MG PER DAY
  7. FENOFIBRATE [Concomitant]
     Indication: HYPERCHOLESTEROLAEMIA
     Dosage: 20MG PER DAY
     Route: 048
  8. OMEPRAZOLE [Concomitant]
     Indication: ULCER
     Dosage: 20MG PER DAY
     Route: 048

REACTIONS (1)
  - Performance status decreased [Fatal]
